FAERS Safety Report 24446106 (Version 1)
Quarter: 2024Q4

REPORT INFORMATION
  Report Type: Spontaneous
  Country: US (occurrence: US)
  Receive Date: 20241016
  Receipt Date: 20241016
  Transmission Date: 20250115
  Serious: No
  Sender: SANDOZ
  Company Number: US-002147023-NVSC2023US250039

PATIENT
  Age: 53 Year
  Sex: Female

DRUGS (4)
  1. ESTRADIOL VALERATE\NORETHINDRONE ACETATE [Suspect]
     Active Substance: ESTRADIOL VALERATE\NORETHINDRONE ACETATE
     Dosage: UNK
     Route: 065
  2. ESTRADIOL VALERATE\NORETHINDRONE ACETATE [Suspect]
     Active Substance: ESTRADIOL VALERATE\NORETHINDRONE ACETATE
     Indication: Hot flush
     Dosage: UNK (0.05/0.14 MG)
     Route: 062
     Dates: start: 202309
  3. ESTROGENS [Concomitant]
     Active Substance: ESTROGENS
     Indication: Product used for unknown indication
     Dosage: 1 DOSAGE FORM
     Route: 065
  4. PROGESTERONE [Concomitant]
     Active Substance: PROGESTERONE
     Indication: Arthralgia
     Dosage: 1 DOSAGE FORM
     Route: 065

REACTIONS (1)
  - Intermenstrual bleeding [Recovered/Resolved]

NARRATIVE: CASE EVENT DATE: 20230901
